FAERS Safety Report 13331137 (Version 2)
Quarter: 2017Q1

REPORT INFORMATION
  Report Type: Spontaneous
  Country: US (occurrence: US)
  Receive Date: 20170314
  Receipt Date: 20170329
  Transmission Date: 20170428
  Serious: No
  Sender: FDA-Public Use
  Company Number: US-ENDO PHARMACEUTICALS INC-2017-001146

PATIENT
  Age: 7 Year
  Sex: Male

DRUGS (1)
  1. OXYBUTYNIN CHLORIDE SYRUP [Suspect]
     Active Substance: OXYBUTYNIN CHLORIDE
     Indication: BLADDER DISORDER
     Dosage: UNK UNK, UNKNOWN
     Route: 048
     Dates: start: 201507

REACTIONS (2)
  - Product colour issue [Unknown]
  - Product taste abnormal [Unknown]
